FAERS Safety Report 5887029-1 (Version None)
Quarter: 2008Q3

REPORT INFORMATION
  Report Type: 
  Country: None (occurrence: None)
  Receive Date: 20080915
  Receipt Date: 20080829
  Transmission Date: 20090109
  Serious: Yes (Other)
  Sender: FDA-Public Use
  Company Number: 8036009

PATIENT
  Age: 10 Year
  Sex: Male

DRUGS (3)
  1. PREDNISOLONE [Suspect]
     Indication: BONE MARROW TRANSPLANT
  2. CYCLOSPORINE [Suspect]
     Indication: BONE MARROW TRANSPLANT
  3. TACROLIMUS [Suspect]
     Indication: BONE MARROW TRANSPLANT

REACTIONS (9)
  - ANAPHYLACTIC REACTION [None]
  - EPSTEIN-BARR VIRUS ASSOCIATED LYMPHOPROLIFERATIVE DISORDER [None]
  - EPSTEIN-BARR VIRUS INFECTION [None]
  - GOITRE [None]
  - GRAFT VERSUS HOST DISEASE [None]
  - HYPOTHYROIDISM [None]
  - PSORIASIS [None]
  - RASH PRURITIC [None]
  - TRACHEAL OBSTRUCTION [None]
